FAERS Safety Report 9384366 (Version 4)
Quarter: 2013Q3

REPORT INFORMATION
  Report Type: Report from Study
  Country: BR (occurrence: BR)
  Receive Date: 20130705
  Receipt Date: 20130911
  Transmission Date: 20140515
  Serious: Yes (Hospitalization, Other)
  Sender: FDA-Public Use
  Company Number: PHHY2013BR069779

PATIENT
  Age: 30 Year
  Sex: Female
  Weight: 68 kg

DRUGS (7)
  1. RITALINA [Suspect]
     Dosage: UNK UKN, UNK
     Route: 048
  2. RITALIN LA [Suspect]
     Indication: ATTENTION DEFICIT/HYPERACTIVITY DISORDER
     Dosage: 20 MG, QD
     Route: 048
     Dates: start: 20130507, end: 20130517
  3. RITALIN LA [Suspect]
     Dosage: 10 MG IN 5 DAYS, QD
     Route: 048
  4. TOPIRAMATE [Suspect]
     Indication: ATTENTION DEFICIT/HYPERACTIVITY DISORDER
     Dosage: 1 DF, DAILY
     Route: 048
     Dates: start: 201305, end: 20130726
  5. LAMOTRIGINE [Concomitant]
     Indication: MOOD ALTERED
     Dosage: 1 DF, DAILY
     Route: 048
  6. QUETIAPINE [Concomitant]
     Indication: MOOD ALTERED
     Dosage: 1 DF, DAILY
     Route: 048
     Dates: start: 201204
  7. DEPAKOTE [Concomitant]
     Dosage: UNK UKN, UNK
     Dates: end: 20130517

REACTIONS (17)
  - Nephrolithiasis [Recovered/Resolved]
  - Calculus urinary [Recovered/Resolved]
  - Panic reaction [Recovering/Resolving]
  - Dyspnoea [Recovered/Resolved]
  - Anxiety [Recovering/Resolving]
  - Hypersensitivity [Recovering/Resolving]
  - Nervousness [Recovering/Resolving]
  - Agitation [Not Recovered/Not Resolved]
  - Palpitations [Recovering/Resolving]
  - Depressed mood [Recovering/Resolving]
  - Tremor [Recovering/Resolving]
  - Overdose [Unknown]
  - Change in sustained attention [Unknown]
  - Tachycardia [Recovered/Resolved]
  - Syncope [Recovered/Resolved]
  - Irritability [Recovered/Resolved]
  - Depression [Recovered/Resolved]
